FAERS Safety Report 9688217 (Version 2)
Quarter: 2014Q1

REPORT INFORMATION
  Report Type: Spontaneous
  Country: IT (occurrence: IT)
  Receive Date: 20131114
  Receipt Date: 20140101
  Transmission Date: 20141002
  Serious: Yes (Hospitalization)
  Sender: FDA-Public Use
  Company Number: IT-BRISTOL-MYERS SQUIBB COMPANY-19807254

PATIENT
  Age: 52 Year
  Sex: Male

DRUGS (9)
  1. GLUCOPHAGE [Suspect]
     Indication: TYPE 2 DIABETES MELLITUS
     Route: 048
     Dates: end: 20131017
  2. NORVIR [Interacting]
     Indication: HIV INFECTION
     Route: 048
     Dates: end: 20131017
  3. PANTOPRAZOLE [Concomitant]
  4. METOPROLOL [Concomitant]
  5. SIMVASTATIN [Concomitant]
     Indication: DYSLIPIDAEMIA
  6. REYATAZ [Concomitant]
     Indication: HIV INFECTION
     Route: 048
     Dates: end: 20131017
  7. KIVEXA [Concomitant]
     Indication: HIV INFECTION
     Dosage: 1DF:30 TABLETS IN BLISTER PVC/PVD/ALUMINUM 300-600 MG
     Route: 048
  8. CARDIOASPIRIN [Concomitant]
     Indication: ISCHAEMIC HEART DISEASE PROPHYLAXIS
     Dosage: 1DF: 30 TABS, GASTRO RESISTANT TABS
  9. TRIATEC [Concomitant]
     Indication: HYPERTENSION
     Dosage: 14 DIVISIBLE TABLETS

REACTIONS (4)
  - Cholestasis [Recovering/Resolving]
  - Hypertransaminasaemia [Recovering/Resolving]
  - Abdominal pain [Recovering/Resolving]
  - Drug interaction [Unknown]
